FAERS Safety Report 11168358 (Version 1)
Quarter: 2015Q2

REPORT INFORMATION
  Report Type: Spontaneous
  Country: US (occurrence: None)
  Receive Date: 20150604
  Receipt Date: 20150604
  Transmission Date: 20150821
  Serious: Yes (Disabling, Other)
  Sender: FDA-Public Use
  Company Number: None

PATIENT
  Age: 58 Year
  Sex: Female
  Weight: 64.41 kg

DRUGS (5)
  1. COLESTIPOL [Concomitant]
     Active Substance: COLESTIPOL
  2. VITAMIN D2 [Concomitant]
     Active Substance: ERGOCALCIFEROL
  3. ALLENDRONATE [Concomitant]
  4. VITAMIN D3 [Concomitant]
     Active Substance: CHOLECALCIFEROL
  5. HYOSCYAMINE [Suspect]
     Active Substance: HYOSCYAMINE
     Indication: DIARRHOEA
     Dosage: 1 PILL, TAKEN UNDER THE TONGUE
     Dates: start: 20150328, end: 20150603

REACTIONS (9)
  - Dry throat [None]
  - Lymphoedema [None]
  - Frequent bowel movements [None]
  - Drug effect decreased [None]
  - Visual impairment [None]
  - Dry mouth [None]
  - Radiation proctitis [None]
  - Rectal haemorrhage [None]
  - Joint effusion [None]
